FAERS Safety Report 5824631-7 (Version None)
Quarter: 2008Q3

REPORT INFORMATION
  Report Type: 
  Country: None (occurrence: None)
  Receive Date: 20080728
  Receipt Date: 20080423
  Transmission Date: 20090109
  Serious: Yes (Death, Other)
  Sender: FDA-Public Use
  Company Number: CN-BAYER-200821848GPV

PATIENT

DRUGS (6)
  1. FLUDARABINE [Suspect]
     Indication: ACUTE MYELOID LEUKAEMIA
     Route: 042
  2. CYTARABINE [Suspect]
     Indication: ACUTE MYELOID LEUKAEMIA
     Route: 042
  3. NEUPOGEN [Suspect]
     Indication: ACUTE MYELOID LEUKAEMIA
     Route: 058
  4. ANTIEMETIC TREATMENTS [Concomitant]
     Indication: DRUG USE FOR UNKNOWN INDICATION
     Route: 065
  5. FURACILLIN [Concomitant]
     Indication: INFECTION PROPHYLAXIS
     Route: 065
  6. NYSTATIN [Concomitant]
     Indication: INFECTION PROPHYLAXIS
     Route: 065

REACTIONS (14)
  - ALANINE AMINOTRANSFERASE INCREASED [None]
  - ALOPECIA [None]
  - ASPERGILLOSIS [None]
  - BACTERIAL INFECTION [None]
  - BLOOD BILIRUBIN INCREASED [None]
  - BONE MARROW FAILURE [None]
  - CANDIDIASIS [None]
  - CHRONIC GRAFT VERSUS HOST DISEASE [None]
  - DIARRHOEA [None]
  - DRUG TOXICITY [None]
  - FEBRILE NEUTROPENIA [None]
  - PNEUMONIA [None]
  - PYREXIA [None]
  - STOMATITIS [None]
